FAERS Safety Report 18595731 (Version 1)
Quarter: 2020Q4

REPORT INFORMATION
  Report Type: Spontaneous
  Country: US (occurrence: US)
  Receive Date: 20201209
  Receipt Date: 20201209
  Transmission Date: 20210114
  Serious: No
  Sender: FDA-Public Use
  Company Number: US-JNJFOC-20201138131

PATIENT
  Age: 70 Year
  Sex: Female
  Weight: 52.21 kg

DRUGS (1)
  1. WOMENS ROGAINE UNSCENTED [Suspect]
     Active Substance: MINOXIDIL
     Indication: ALOPECIA
     Dosage: A LITTLE OVER 1 CAPFUL THE 1ST TIME.
     Route: 061
     Dates: start: 20200923, end: 20201022

REACTIONS (4)
  - Application site pain [Recovered/Resolved]
  - Head discomfort [Recovered/Resolved]
  - Application site erythema [Recovered/Resolved]
  - Overdose [Unknown]

NARRATIVE: CASE EVENT DATE: 20200923
